FAERS Safety Report 9881654 (Version 3)
Quarter: 2014Q1

REPORT INFORMATION
  Report Type: Spontaneous
  Country: FI (occurrence: FI)
  Receive Date: 20140207
  Receipt Date: 20140317
  Transmission Date: 20141002
  Serious: Yes (Life-Threatening, Hospitalization, Disabling)
  Sender: FDA-Public Use
  Company Number: FI-JNJFOC-20140201582

PATIENT
  Age: 48 Year
  Sex: Male

DRUGS (6)
  1. REMICADE [Suspect]
     Indication: CROHN^S DISEASE
     Route: 042
     Dates: end: 20111130
  2. REMICADE [Suspect]
     Indication: CROHN^S DISEASE
     Route: 042
     Dates: start: 20110331, end: 20111018
  3. HUMIRA [Suspect]
     Indication: CROHN^S DISEASE
     Route: 058
     Dates: start: 20111116, end: 20130724
  4. ASACOL [Concomitant]
     Indication: CROHN^S DISEASE
     Route: 048
     Dates: start: 2000
  5. AZAMUN [Concomitant]
     Indication: CROHN^S DISEASE
     Route: 048
     Dates: start: 20010903
  6. PREDNISONE [Concomitant]
     Indication: CROHN^S DISEASE
     Dosage: 10-40MG
     Route: 048
     Dates: start: 2000

REACTIONS (4)
  - Adenocarcinoma [Not Recovered/Not Resolved]
  - Crohn^s disease [Not Recovered/Not Resolved]
  - Metastases to lung [Recovering/Resolving]
  - Drug ineffective [Unknown]
